FAERS Safety Report 9330803 (Version 1)
Quarter: 2013Q2

REPORT INFORMATION
  Report Type: Spontaneous
  Country: US (occurrence: None)
  Receive Date: 20130604
  Receipt Date: 20130604
  Transmission Date: 20140414
  Serious: Yes (Hospitalization)
  Sender: FDA-Public Use
  Company Number: None

PATIENT
  Age: 79 Year
  Sex: Female

DRUGS (11)
  1. PIROXICAM [Suspect]
     Indication: PAIN
     Route: 048
  2. SPIRONOLACTONE [Concomitant]
  3. ASA [Concomitant]
  4. PLAVIX [Concomitant]
  5. DIOVAN [Concomitant]
  6. ZETIA [Concomitant]
  7. HUMULINN [Concomitant]
  8. FUROSEMIDE [Concomitant]
  9. ESTRE [Concomitant]
  10. ZOCOR [Concomitant]
  11. METOPROLOL [Concomitant]

REACTIONS (4)
  - Rash [None]
  - Anaphylactic reaction [None]
  - Hypotension [None]
  - Renal failure [None]
